FAERS Safety Report 5388821-2 (Version None)
Quarter: 2007Q3

REPORT INFORMATION
  Report Type: 
  Country: None (occurrence: None)
  Receive Date: 20070712
  Receipt Date: 20070627
  Transmission Date: 20080115
  Serious: Yes (Hospitalization, Disabling)
  Sender: FDA-Public Use
  Company Number: 2007S1005935

PATIENT
  Age: 42 Year
  Sex: Male
  Weight: 83.9154 kg

DRUGS (5)
  1. PHENYTOIN SODIUM [Suspect]
     Indication: EPILEPSY
     Dosage: 100 MG; ORAL
     Route: 048
     Dates: end: 20070101
  2. ALEVE /00256202/ (CON.) [Concomitant]
  3. GLUCOSAMINE (CON.) [Concomitant]
  4. PHENOBARB /00023201/ (CON.) [Concomitant]
  5. INDOCIN /00003801/ (CON.) [Concomitant]

REACTIONS (8)
  - ANTICONVULSANT DRUG LEVEL DECREASED [None]
  - ARTHRALGIA [None]
  - GRAND MAL CONVULSION [None]
  - MOBILITY DECREASED [None]
  - SENSORY LOSS [None]
  - SPINAL CORD INJURY [None]
  - TENDONITIS [None]
  - TREATMENT NONCOMPLIANCE [None]
